FAERS Safety Report 8748160 (Version 3)
Quarter: 2012Q4

REPORT INFORMATION
  Report Type: Report from Study
  Country: DE (occurrence: AR)
  Receive Date: 20120827
  Receipt Date: 20120905
  Transmission Date: 20130627
  Serious: Yes (Death, Other)
  Sender: FDA-Public Use
  Company Number: DE-ACTELION-A-US2012-70497

PATIENT
  Age: 68 Year
  Sex: Female

DRUGS (10)
  1. VENTAVIS [Suspect]
     Indication: PULMONARY HYPERTENSION
     Dosage: 10 ug, 4 times x day
     Route: 055
     Dates: start: 2007, end: 201208
  2. TRACLEER [Concomitant]
     Indication: PULMONARY ARTERIAL HYPERTENSION
     Dosage: 125 mg, bid
     Route: 048
  3. AZATHIOPRIN [Concomitant]
  4. OMEPRAZOLE [Concomitant]
  5. ACENOCOUMAROL [Concomitant]
  6. SILDENAFIL [Concomitant]
  7. PREDNISONE [Concomitant]
  8. ENALAPRIL [Concomitant]
  9. FUROSEMIDE [Concomitant]
  10. OXYGEN [Concomitant]

REACTIONS (3)
  - Cardiac arrest [Fatal]
  - Disease progression [Fatal]
  - Dyspnoea at rest [Unknown]
